FAERS Safety Report 7466868-X (Version None)
Quarter: 2011Q2

REPORT INFORMATION
  Report Type: 
  Country: None (occurrence: None)
  Receive Date: 20110509
  Receipt Date: 20100922
  Transmission Date: 20111010
  Serious: No
  Sender: FDA-Public Use
  Company Number: US-ALEXION-A201001215

PATIENT
  Sex: Female

DRUGS (3)
  1. PLATELETS [Concomitant]
  2. SOLIRIS [Suspect]
     Indication: PAROXYSMAL NOCTURNAL HAEMOGLOBINURIA
     Dosage: UNK
     Route: 042
  3. IRON [Concomitant]

REACTIONS (5)
  - BLOOD LACTATE DEHYDROGENASE DECREASED [None]
  - PLATELET COUNT DECREASED [None]
  - HEADACHE [None]
  - BLOOD BILIRUBIN INCREASED [None]
  - ABDOMINAL PAIN [None]
